FAERS Safety Report 21951107 (Version 4)
Quarter: 2025Q3

REPORT INFORMATION
  Report Type: Report from Study
  Country: US (occurrence: US)
  Receive Date: 20230203
  Receipt Date: 20250710
  Transmission Date: 20251020
  Serious: Yes (Other)
  Sender: JAZZ
  Company Number: US-JAZZ-2023-US-002289

PATIENT
  Sex: Male

DRUGS (2)
  1. EPIDIOLEX [Suspect]
     Active Substance: CANNABIDIOL
     Indication: Febrile convulsion
     Dosage: 2.5 MILLILITER, BID, FOR 30 DAYS
     Route: 048
  2. EPIDIOLEX [Suspect]
     Active Substance: CANNABIDIOL
     Indication: Periventricular leukomalacia

REACTIONS (3)
  - Seizure [Unknown]
  - Product administration interrupted [Unknown]
  - Off label use [Unknown]
